FAERS Safety Report 4892653-9 (Version None)
Quarter: 2005Q4

REPORT INFORMATION
  Report Type: 
  Country: None (occurrence: None)
  Receive Date: 20051220
  Receipt Date: 20051104
  Transmission Date: 20060501
  Serious: Yes (Other)
  Sender: FDA-Public Use
  Company Number: 423917

PATIENT
  Age: 84 Year
  Sex: Female
  Weight: 56.2 kg

DRUGS (7)
  1. BONIVA [Suspect]
     Indication: OSTEOPOROSIS
     Dosage: 150 MG 1 PER MONTH ORAL
     Route: 048
     Dates: start: 20051102
  2. MONOPRIL [Concomitant]
  3. SYNTHROID [Concomitant]
  4. LANOXIN [Concomitant]
  5. MEMANTINE HYDROCHLORIDE (MEMANTINE) [Concomitant]
  6. ZOCOR [Concomitant]
  7. GINKO PROCTO (BUTAMBEN/GINKGO BILOBA) [Concomitant]

REACTIONS (11)
  - ABDOMINAL DISCOMFORT [None]
  - ANOREXIA [None]
  - CEREBRAL DISORDER [None]
  - DIARRHOEA [None]
  - FATIGUE [None]
  - FEELING COLD [None]
  - NASOPHARYNGITIS [None]
  - NAUSEA [None]
  - NERVOUS SYSTEM DISORDER [None]
  - SOMNOLENCE [None]
  - VISION BLURRED [None]
